FAERS Safety Report 12709010 (Version 1)
Quarter: 2016Q3

REPORT INFORMATION
  Report Type: Report from Study
  Country: CO (occurrence: CO)
  Receive Date: 20160901
  Receipt Date: 20160901
  Transmission Date: 20161109
  Serious: Yes (Other)
  Sender: FDA-Public Use
  Company Number: CO-ABBVIE-16K-036-1714443-00

PATIENT
  Age: 30 Year
  Sex: Female
  Weight: 62 kg

DRUGS (1)
  1. HUMIRA [Suspect]
     Active Substance: ADALIMUMAB
     Indication: COLITIS ULCERATIVE
     Route: 058
     Dates: start: 20140423, end: 20160615

REACTIONS (5)
  - Gastrointestinal pain [Not Recovered/Not Resolved]
  - Wound [Recovering/Resolving]
  - Neurorrhaphy [Recovering/Resolving]
  - Pyrexia [Unknown]
  - Foreign body [Recovering/Resolving]

NARRATIVE: CASE EVENT DATE: 20160804
